FAERS Safety Report 16339683 (Version 1)
Quarter: 2019Q2

REPORT INFORMATION
  Report Type: Spontaneous
  Country: US (occurrence: US)
  Receive Date: 20190521
  Receipt Date: 20190521
  Transmission Date: 20190711
  Serious: Yes (Other)
  Sender: FDA-Public Use
  Company Number: US-ELI_LILLY_AND_COMPANY-US201905006316

PATIENT
  Sex: Female

DRUGS (1)
  1. CIALIS [Suspect]
     Active Substance: TADALAFIL
     Indication: CARDIOVASCULAR DISORDER
     Dosage: UNK UNK, UNKNOWN
     Route: 065

REACTIONS (2)
  - Cryoglobulins present [Unknown]
  - Pain [Unknown]
